FAERS Safety Report 5847921-0 (Version None)
Quarter: 2008Q3

REPORT INFORMATION
  Report Type: 
  Country: None (occurrence: None)
  Receive Date: 20080814
  Receipt Date: 20080814
  Transmission Date: 20090109
  Serious: Yes (Life-Threatening, Other)
  Sender: FDA-Public Use
  Company Number: None

PATIENT
  Age: 44 Year
  Sex: Male
  Weight: 83.9154 kg

DRUGS (3)
  1. DURAGESIC-100 [Suspect]
     Indication: COMPLEX REGIONAL PAIN SYNDROME
     Dosage: 100 MCG  1 PATCH FOR 3 DAYS CUTANEUOS
     Route: 003
     Dates: start: 20080103, end: 20080813
  2. DURAGESIC-100 [Suspect]
     Indication: ORTHOPEDIC PROCEDURE
     Dosage: 100 MCG  1 PATCH FOR 3 DAYS CUTANEUOS
     Route: 003
     Dates: start: 20080103, end: 20080813
  3. DURAGESIC-100 [Suspect]
     Indication: PAIN
     Dosage: 100 MCG  1 PATCH FOR 3 DAYS CUTANEUOS
     Route: 003
     Dates: start: 20080103, end: 20080813

REACTIONS (7)
  - DYSPNOEA [None]
  - HYPERHIDROSIS [None]
  - HYPERTENSION [None]
  - NAUSEA [None]
  - OVERDOSE [None]
  - PHARMACEUTICAL PRODUCT COMPLAINT [None]
  - VOMITING [None]
